FAERS Safety Report 4519888-9 (Version None)
Quarter: 2004Q4

REPORT INFORMATION
  Report Type: 
  Country: None (occurrence: None)
  Receive Date: 20041201
  Receipt Date: 20041201
  Transmission Date: 20050328
  Serious: Yes (Life-Threatening)
  Sender: FDA-Public Use
  Company Number: None

PATIENT
  Sex: Female
  Weight: 47.6277 kg

DRUGS (14)
  1. GEMCITABINE   100MG/ML    LILLY [Suspect]
     Indication: PANCREATIC CARCINOMA
     Dosage: 1000MG/M2   DAY 1 + 15   INTRAVENOU
     Route: 042
     Dates: start: 20040929, end: 20041110
  2. CISPLATIN [Suspect]
     Indication: PANCREATIC CARCINOMA
     Dosage: 20MG/M2   DAY 1 + 15   INTRAVENOU
     Route: 042
     Dates: start: 20040929, end: 20041110
  3. ALBUTEROL [Concomitant]
  4. ADVAIR DISKUS 100/50 [Concomitant]
  5. ZOLOFT [Concomitant]
  6. PREDNISONE [Concomitant]
  7. M.V.I. [Concomitant]
  8. PROTONIX [Concomitant]
  9. TYLENOL W/ CODEINE NO. 3 [Concomitant]
  10. OXYCODONE HCL [Concomitant]
  11. LORAZEPAM [Concomitant]
  12. COMPAZZINE [Concomitant]
  13. KYTRIL [Concomitant]
  14. ARANESP [Concomitant]

REACTIONS (1)
  - PULMONARY EMBOLISM [None]
